FAERS Safety Report 15687416 (Version 2)
Quarter: 2021Q1

REPORT INFORMATION
  Report Type: Spontaneous
  Country: US (occurrence: US)
  Receive Date: 20181205
  Receipt Date: 20210104
  Transmission Date: 20210419
  Serious: Yes (Other)
  Sender: FDA-Public Use
  Company Number: US-PFIZER INC-2018500409

PATIENT
  Age: 84 Year
  Sex: Female

DRUGS (2)
  1. SOMAVERT [Suspect]
     Active Substance: PEGVISOMANT
     Dosage: 30 MG, DAILY
  2. SOMAVERT [Suspect]
     Active Substance: PEGVISOMANT
     Dosage: 30 MG
     Dates: start: 20150716

REACTIONS (16)
  - Fatigue [Not Recovered/Not Resolved]
  - Blood growth hormone abnormal [Unknown]
  - Haemoglobin decreased [Unknown]
  - Blood thyroid stimulating hormone decreased [Unknown]
  - Blood uric acid increased [Unknown]
  - Breast cancer [Unknown]
  - Red cell distribution width increased [Unknown]
  - Blood parathyroid hormone increased [Unknown]
  - Insulin-like growth factor increased [Unknown]
  - Blood triglycerides increased [Unknown]
  - Glycosylated haemoglobin increased [Unknown]
  - Red blood cell count decreased [Unknown]
  - Very low density lipoprotein increased [Unknown]
  - Haematocrit decreased [Unknown]
  - Vitamin D decreased [Unknown]
  - Mean cell haemoglobin decreased [Unknown]

NARRATIVE: CASE EVENT DATE: 201311
